FAERS Safety Report 13395519 (Version 1)
Quarter: 2017Q2

REPORT INFORMATION
  Report Type: Spontaneous
  Country: US (occurrence: US)
  Receive Date: 20170403
  Receipt Date: 20170403
  Transmission Date: 20170830
  Serious: No
  Sender: FDA-Public Use
  Company Number: US-BAYER-2017-057648

PATIENT
  Sex: Female
  Weight: 55 kg

DRUGS (4)
  1. MIRALAX [Suspect]
     Active Substance: POLYETHYLENE GLYCOL 3350
     Indication: IRRITABLE BOWEL SYNDROME
     Dosage: 1 DF, QD
     Route: 048
     Dates: end: 20170323
  2. BAYER LOW DOSE [Suspect]
     Active Substance: ASPIRIN
     Dosage: 1 DF, QD
     Route: 048
  3. LISINOPRIL. [Concomitant]
     Active Substance: LISINOPRIL
     Route: 065
  4. PRAVASTATIN. [Concomitant]
     Active Substance: PRAVASTATIN
     Route: 065

REACTIONS (4)
  - Circumstance or information capable of leading to medication error [Unknown]
  - Product use issue [Unknown]
  - Off label use [Unknown]
  - Product use in unapproved indication [Unknown]
